FAERS Safety Report 7628666-3 (Version None)
Quarter: 2011Q3

REPORT INFORMATION
  Report Type: 
  Country: None (occurrence: None)
  Receive Date: 20110722
  Receipt Date: 20110715
  Transmission Date: 20111222
  Serious: Yes (Other)
  Sender: FDA-Public Use
  Company Number: US-GENZYME-CAMP-1001754

PATIENT
  Sex: Female

DRUGS (1)
  1. CAMPATH [Suspect]
     Indication: MYELODYSPLASTIC SYNDROME
     Dosage: 10 MG, QD
     Route: 042
     Dates: start: 20110328, end: 20110406

REACTIONS (1)
  - MYELODYSPLASTIC SYNDROME [None]
